FAERS Safety Report 7376751-6 (Version None)
Quarter: 2011Q1

REPORT INFORMATION
  Report Type: 
  Country: None (occurrence: None)
  Receive Date: 20110325
  Receipt Date: 20110314
  Transmission Date: 20110831
  Serious: Yes (Death)
  Sender: FDA-Public Use
  Company Number: FR-WATSON-2011-03815

PATIENT
  Age: 45 Year
  Sex: Male

DRUGS (2)
  1. CYCLOPHOSPHAMIDE [Suspect]
     Indication: COLITIS ULCERATIVE
     Dosage: UNK
  2. INFLIXIMAB [Suspect]
     Indication: COLITIS ULCERATIVE
     Dosage: UNK

REACTIONS (1)
  - PULMONARY EMBOLISM [None]
